FAERS Safety Report 9607312 (Version 1)
Quarter: 2013Q4

REPORT INFORMATION
  Report Type: Spontaneous
  Country: US (occurrence: None)
  Receive Date: 20131007
  Receipt Date: 20131007
  Transmission Date: 20140711
  Serious: Yes (Life-Threatening, Hospitalization, Other)
  Sender: FDA-Public Use
  Company Number: None

PATIENT
  Sex: Female
  Weight: 70.4 kg

DRUGS (1)
  1. CARIMUNE [Suspect]
     Indication: DEMYELINATING POLYNEUROPATHY
     Route: 042
     Dates: start: 20130918, end: 20130920

REACTIONS (4)
  - Blood creatine increased [None]
  - Blood potassium increased [None]
  - Mental status changes [None]
  - Haemodialysis [None]
